FAERS Safety Report 23848534 (Version 1)
Quarter: 2024Q2

REPORT INFORMATION
  Report Type: Spontaneous
  Country: US (occurrence: US)
  Receive Date: 20240513
  Receipt Date: 20240513
  Transmission Date: 20240716
  Serious: Yes (Hospitalization)
  Sender: FDA-Public Use
  Company Number: US-MYLANLABS-2024M1042170

PATIENT
  Age: 71 Year
  Sex: Female

DRUGS (8)
  1. APIXABAN [Suspect]
     Active Substance: APIXABAN
     Indication: Cardiac ablation
     Dosage: 5 MILLIGRAM, BID
     Route: 065
  2. APIXABAN [Suspect]
     Active Substance: APIXABAN
     Indication: Atrial fibrillation
  3. HEPARIN [Suspect]
     Active Substance: HEPARIN SODIUM
     Indication: Cardiac ablation
     Dosage: 7500 INTERNATIONAL UNIT
     Route: 065
  4. HEPARIN [Suspect]
     Active Substance: HEPARIN SODIUM
     Indication: Atrial fibrillation
     Dosage: 5000 INTERNATIONAL UNIT
     Route: 065
  5. HEPARIN [Suspect]
     Active Substance: HEPARIN SODIUM
     Dosage: 3000 INTERNATIONAL UNIT
     Route: 065
  6. HEPARIN [Suspect]
     Active Substance: HEPARIN SODIUM
     Dosage: 1000 INTERNATIONAL UNIT
     Route: 065
  7. FLECAINIDE [Concomitant]
     Active Substance: FLECAINIDE
     Indication: Cardiac ablation
     Dosage: 100 MILLIGRAM, BID
     Route: 065
  8. FLECAINIDE [Concomitant]
     Active Substance: FLECAINIDE
     Indication: Atrial fibrillation

REACTIONS (4)
  - Hypoaesthesia [Recovered/Resolved]
  - Spinal epidural haematoma [Recovered/Resolved]
  - Spinal cord compression [Recovered/Resolved]
  - Muscular weakness [Recovered/Resolved]
